FAERS Safety Report 10386745 (Version 2)
Quarter: 2014Q3

REPORT INFORMATION
  Report Type: Spontaneous
  Country: DE (occurrence: DE)
  Receive Date: 20140815
  Receipt Date: 20140909
  Transmission Date: 20150326
  Serious: Yes (Other)
  Sender: FDA-Public Use
  Company Number: DE-JNJFOC-20140805726

PATIENT
  Age: 73 Year
  Sex: Female
  Weight: 89 kg

DRUGS (3)
  1. STELARA [Suspect]
     Active Substance: USTEKINUMAB
     Indication: PRODUCT USED FOR UNKNOWN INDICATION
     Route: 058
     Dates: start: 201403
  2. L-THYROXINE [Concomitant]
     Active Substance: LEVOTHYROXINE
     Dosage: 100
     Route: 065
  3. AMLODIPINE [Concomitant]
     Active Substance: AMLODIPINE BESYLATE
     Route: 065

REACTIONS (1)
  - Splenomegaly [Recovered/Resolved]

NARRATIVE: CASE EVENT DATE: 20140807
